FAERS Safety Report 6001124-8 (Version None)
Quarter: 2008Q4

REPORT INFORMATION
  Report Type: 
  Country: None (occurrence: None)
  Receive Date: 20081215
  Receipt Date: 20071112
  Transmission Date: 20090506
  Serious: No
  Sender: FDA-Public Use
  Company Number: US-AMGEN-KDL246619

PATIENT
  Sex: Female

DRUGS (2)
  1. ENBREL [Suspect]
     Indication: ANKYLOSING SPONDYLITIS
     Route: 058
     Dates: start: 20070827
  2. SULFASALAZINE [Concomitant]
     Route: 048
     Dates: start: 20070901

REACTIONS (5)
  - DENTAL CARIES [None]
  - DIZZINESS [None]
  - SINUSITIS [None]
  - TOOTHACHE [None]
  - WEIGHT INCREASED [None]
